FAERS Safety Report 6072862-6 (Version None)
Quarter: 2009Q1

REPORT INFORMATION
  Report Type: 
  Country: None (occurrence: None)
  Receive Date: 20090210
  Receipt Date: 20090113
  Transmission Date: 20090719
  Serious: Yes (Hospitalization)
  Sender: FDA-Public Use
  Company Number: DE-GENENTECH-276787

PATIENT
  Age: 7 Year
  Sex: Male

DRUGS (1)
  1. PULMOZYME [Suspect]
     Indication: IMMOTILE CILIA SYNDROME
     Dosage: UNK
     Route: 055
     Dates: start: 20080901

REACTIONS (3)
  - ABDOMINAL PAIN [None]
  - NAUSEA [None]
  - URTICARIA [None]
